FAERS Safety Report 16648578 (Version 1)
Quarter: 2019Q3

REPORT INFORMATION
  Report Type: Spontaneous
  Country: US (occurrence: US)
  Receive Date: 20190730
  Receipt Date: 20190730
  Transmission Date: 20191004
  Serious: Yes (Disabling)
  Sender: FDA-Public Use
  Company Number: US-ALLERGAN-1928565US

PATIENT
  Sex: Female

DRUGS (4)
  1. UNKNOWN PSYCH MEDS [Concomitant]
  2. VRAYLAR [Suspect]
     Active Substance: CARIPRAZINE
     Indication: PRODUCT USED FOR UNKNOWN INDICATION
     Route: 048
  3. SEROQUEL [Concomitant]
     Active Substance: QUETIAPINE FUMARATE
  4. MORPHINE [Concomitant]
     Active Substance: MORPHINE

REACTIONS (4)
  - Gait inability [Not Recovered/Not Resolved]
  - Dementia Alzheimer^s type [Not Recovered/Not Resolved]
  - Feeding disorder [Not Recovered/Not Resolved]
  - Wrong technique in product usage process [Unknown]
